FAERS Safety Report 5421308-7 (Version None)
Quarter: 2007Q3

REPORT INFORMATION
  Report Type: 
  Country: None (occurrence: None)
  Receive Date: 20070719
  Receipt Date: 20061208
  Transmission Date: 20080115
  Serious: Yes (Hospitalization)
  Sender: FDA-Public Use
  Company Number: OMPQ-PR-0612S-1569

PATIENT
  Age: 29 Year
  Sex: Male

DRUGS (1)
  1. OMNIPAQUE 140 [Suspect]
     Indication: BACK PAIN
     Dosage: 13 ML, SINGLE DOSE, I.T.
     Route: 037
     Dates: start: 20061130, end: 20061130

REACTIONS (1)
  - MENINGITIS ASEPTIC [None]
